FAERS Safety Report 15829095 (Version 1)
Quarter: 2019Q1

REPORT INFORMATION
  Report Type: Spontaneous
  Country: US (occurrence: US)
  Receive Date: 20190115
  Receipt Date: 20190115
  Transmission Date: 20190417
  Serious: No
  Sender: FDA-Public Use
  Company Number: US-ALLERGAN-1832130US

PATIENT
  Age: 74 Year
  Sex: Female

DRUGS (3)
  1. SYSTANE (HYPROMELLOSE 2910 (4000 MPA.S)) [Concomitant]
     Active Substance: HYPROMELLOSE 2910 (4000 MPA.S)
     Indication: DRY EYE
     Route: 047
  2. FRESH EYES [Concomitant]
     Indication: DRY EYE
     Route: 047
  3. RESTASIS [Suspect]
     Active Substance: CYCLOSPORINE
     Indication: DRY EYE
     Dosage: 2 GTT, BID
     Route: 047
     Dates: end: 20180622

REACTIONS (5)
  - Drug hypersensitivity [Recovering/Resolving]
  - Drug ineffective [Unknown]
  - Erythema of eyelid [Recovering/Resolving]
  - Eyelids pruritus [Recovering/Resolving]
  - Eyelid exfoliation [Recovering/Resolving]
